FAERS Safety Report 5370179-6 (Version None)
Quarter: 2007Q2

REPORT INFORMATION
  Report Type: 
  Country: None (occurrence: None)
  Receive Date: 20070626
  Receipt Date: 20070614
  Transmission Date: 20071010
  Serious: Yes (Hospitalization)
  Sender: FDA-Public Use
  Company Number: CS-NOVOPROD-264152

PATIENT
  Age: 14 Year
  Sex: Female
  Weight: 55 kg

DRUGS (2)
  1. NOVORAPID FLEXPEN [Suspect]
     Indication: DIABETES MELLITUS INSULIN-DEPENDENT
     Dosage: 34 IU, UNK
     Dates: start: 20061120
  2. LEVEMIR [Suspect]
     Indication: DIABETES MELLITUS INSULIN-DEPENDENT
     Dosage: 12 IU, UNK
     Route: 058
     Dates: start: 20061120

REACTIONS (5)
  - ASTHENIA [None]
  - DIARRHOEA [None]
  - HEADACHE [None]
  - HYPOGLYCAEMIA [None]
  - VOMITING [None]
